FAERS Safety Report 7565160-2 (Version None)
Quarter: 2011Q2

REPORT INFORMATION
  Report Type: 
  Country: None (occurrence: None)
  Receive Date: 20110622
  Receipt Date: 20110606
  Transmission Date: 20111010
  Serious: Yes (Hospitalization, Other)
  Sender: FDA-Public Use
  Company Number: PHHY2011US49766

PATIENT
  Sex: Female

DRUGS (5)
  1. RECLAST [Suspect]
     Route: 042
     Dates: start: 20090101
  2. RECLAST [Suspect]
     Route: 042
     Dates: start: 20100101
  3. ADVAIR DISKUS 100/50 [Concomitant]
  4. DUONEB [Concomitant]
  5. BENICAR [Concomitant]

REACTIONS (5)
  - LUNG DISORDER [None]
  - PAIN [None]
  - EXPOSED BONE IN JAW [None]
  - DYSPNOEA [None]
  - BONE DISORDER [None]
